FAERS Safety Report 9280687 (Version 2)
Quarter: 2013Q2

REPORT INFORMATION
  Report Type: Spontaneous
  Country: US (occurrence: US)
  Receive Date: 20130509
  Receipt Date: 20130614
  Transmission Date: 20140414
  Serious: Yes (Hospitalization)
  Sender: FDA-Public Use
  Company Number: US-PFIZER INC-2013142742

PATIENT
  Sex: 0

DRUGS (1)
  1. BEXTRA [Suspect]
     Dosage: UNK
     Dates: start: 1999, end: 200408

REACTIONS (1)
  - Gastrointestinal haemorrhage [Unknown]
